FAERS Safety Report 6842976-9 (Version None)
Quarter: 2010Q3

REPORT INFORMATION
  Report Type: 
  Country: None (occurrence: None)
  Receive Date: 20100714
  Receipt Date: 20070807
  Transmission Date: 20110219
  Serious: No
  Sender: FDA-Public Use
  Company Number: US-PFIZER INC-2007066885

PATIENT
  Sex: Female
  Weight: 56.8 kg

DRUGS (4)
  1. CHANTIX [Suspect]
     Indication: SMOKING CESSATION THERAPY
     Dates: end: 20070801
  2. CHOLESTEROL [Concomitant]
  3. ANTIHYPERTENSIVES [Concomitant]
  4. DRUG, UNSPECIFIED [Concomitant]

REACTIONS (3)
  - BLOOD CHOLESTEROL INCREASED [None]
  - BLOOD IRON DECREASED [None]
  - INSOMNIA [None]
